FAERS Safety Report 5616188-0 (Version None)
Quarter: 2008Q1

REPORT INFORMATION
  Report Type: 
  Country: None (occurrence: None)
  Receive Date: 20080201
  Receipt Date: 20080123
  Transmission Date: 20080703
  Serious: Yes (Hospitalization)
  Sender: FDA-Public Use
  Company Number: 2007BI025135

PATIENT
  Age: 37 Year
  Sex: Female
  Weight: 103.4201 kg

DRUGS (2)
  1. AVONEX [Suspect]
     Indication: MULTIPLE SCLEROSIS
     Dosage: 30 UG; QW; IM
     Route: 030
     Dates: start: 20070726
  2. HYDROCODONE BITARTRATE [Concomitant]

REACTIONS (4)
  - CHOLELITHIASIS [None]
  - CONDITION AGGRAVATED [None]
  - CROHN'S DISEASE [None]
  - GASTROINTESTINAL INFECTION [None]
